FAERS Safety Report 5911726-2 (Version None)
Quarter: 2008Q4

REPORT INFORMATION
  Report Type: 
  Country: None (occurrence: None)
  Receive Date: 20081008
  Receipt Date: 20081001
  Transmission Date: 20090506
  Serious: Yes (Life-Threatening, Hospitalization, Disabling)
  Sender: FDA-Public Use
  Company Number: GB-RANBAXY-2008RR-18436

PATIENT
  Age: 83 Year
  Sex: Female

DRUGS (10)
  1. SIMVASTATIN [Suspect]
     Indication: BLOOD CHOLESTEROL INCREASED
     Dosage: 20 MG, UNK
     Route: 048
     Dates: end: 20080917
  2. AMIODARONE HCL [Suspect]
     Indication: ATRIAL FIBRILLATION
     Dosage: 200 MG, QD
     Route: 048
     Dates: start: 20080913, end: 20080917
  3. ACETAMINOPHEN W/ CODEINE [Concomitant]
  4. FELODIPINE [Concomitant]
  5. IMIPRAMINE HYDROCHLORIDE [Concomitant]
  6. OMEPRAZOLE [Concomitant]
  7. SALBUTAMOL [Concomitant]
  8. SALMETEROL [Concomitant]
  9. VALSARTAN [Concomitant]
  10. ZOPICLONE [Concomitant]

REACTIONS (1)
  - PULMONARY FIBROSIS [None]
